FAERS Safety Report 9974329 (Version 1)
Quarter: 2014Q1

REPORT INFORMATION
  Report Type: Report from Study
  Country: US (occurrence: US)
  Receive Date: 20140306
  Receipt Date: 20140306
  Transmission Date: 20141002
  Serious: No
  Sender: FDA-Public Use
  Company Number: US-ABBVIE-13P-163-1156906-00

PATIENT
  Sex: Male

DRUGS (7)
  1. HUMIRA [Suspect]
     Indication: CROHN^S DISEASE
     Dates: start: 20130903, end: 20130903
  2. HUMIRA [Suspect]
     Dates: start: 20130917, end: 20130917
  3. HUMIRA [Suspect]
     Dates: start: 20131001, end: 20131001
  4. HUMIRA [Suspect]
  5. ADDERALL [Suspect]
     Indication: ATTENTION DEFICIT/HYPERACTIVITY DISORDER
  6. WELLBUTRIN [Concomitant]
     Indication: DEPRESSION
  7. AN IMMUNOSUPPRESSANT [Concomitant]
     Indication: CROHN^S DISEASE
     Dosage: DAILY

REACTIONS (2)
  - Adverse reaction [Not Recovered/Not Resolved]
  - Dry skin [Not Recovered/Not Resolved]
